FAERS Safety Report 9027324 (Version 2)
Quarter: 2013Q2

REPORT INFORMATION
  Report Type: Spontaneous
  Country: JP (occurrence: JP)
  Receive Date: 20130123
  Receipt Date: 20130416
  Transmission Date: 20140414
  Serious: Yes (Hospitalization, Other)
  Sender: FDA-Public Use
  Company Number: JP-OTSUKA-JP-2013-10081

PATIENT
  Age: 66 Year
  Sex: Male
  Weight: 69 kg

DRUGS (12)
  1. SAMSCA [Suspect]
     Indication: OLIGURIA
     Dosage: 7.5 MG MILLIGRAM(S), QD
     Route: 048
     Dates: start: 20130108, end: 20130110
  2. SAMSCA [Suspect]
     Indication: CARDIAC FAILURE
  3. GLYCEREB [Concomitant]
     Indication: BRAIN OEDEMA
     Dosage: UNK, BID
     Route: 042
     Dates: start: 20121230
  4. ADALAT CR [Concomitant]
     Indication: HYPERTENSION
     Dosage: 40 MG MILLIGRAM(S), QD
     Route: 048
     Dates: start: 20130104
  5. GAMOFA [Concomitant]
     Indication: PROPHYLAXIS AGAINST GASTROINTESTINAL ULCER
     Dosage: 20 MG MILLIGRAM(S), QD
     Route: 048
     Dates: start: 20130104
  6. MAINTATE [Concomitant]
     Indication: TACHYCARDIA
     Dosage: 5 MG MILLIGRAM(S), QD
     Route: 048
     Dates: start: 20130107
  7. HANP [Concomitant]
     Indication: OLIGURIA
     Dosage: UNK
     Route: 042
     Dates: start: 20130108, end: 20130110
  8. LASIX [Concomitant]
     Indication: OLIGURIA
     Dosage: UNK UNK, QD
     Route: 042
     Dates: start: 20130108, end: 20130110
  9. MYOCOR [Concomitant]
     Indication: CARDIAC FAILURE
     Dosage: UNK
     Route: 042
     Dates: start: 20130108, end: 20130110
  10. PREDOPA [Concomitant]
     Indication: OLIGURIA
     Dosage: UNK
     Route: 042
     Dates: start: 20130108, end: 20130110
  11. NICARDIPINE [Concomitant]
     Indication: HYPERTENSION
     Dosage: UNK
     Route: 042
  12. CEFTRIAXONE SODIUM [Concomitant]

REACTIONS (2)
  - Hypernatraemia [Recovered/Resolved]
  - Thirst [Unknown]
